FAERS Safety Report 8392566-4 (Version None)
Quarter: 2012Q2

REPORT INFORMATION
  Report Type: 
  Country: None (occurrence: None)
  Receive Date: 20120529
  Receipt Date: 20120524
  Transmission Date: 20120825
  Serious: Yes (Death, Life-Threatening, Other)
  Sender: FDA-Public Use
  Company Number: TR-MERCK-1204USA02057

PATIENT
  Age: 53 Year
  Sex: Female

DRUGS (4)
  1. TEOBAG [Concomitant]
     Indication: BRONCHOSPASM
     Route: 042
  2. MIDAZOLAM HCL [Concomitant]
     Indication: ANAESTHESIA
     Route: 042
  3. CANCIDAS [Suspect]
     Indication: OESOPHAGEAL CANDIDIASIS
     Route: 041
     Dates: start: 20120307, end: 20120313
  4. CEFUROXIME [Concomitant]
     Indication: ANTIBIOTIC LEVEL
     Route: 042

REACTIONS (3)
  - PANCYTOPENIA [None]
  - CARDIO-RESPIRATORY ARREST [None]
  - TRACHEAL STENOSIS [None]
